FAERS Safety Report 7200502-9 (Version None)
Quarter: 2010Q4

REPORT INFORMATION
  Report Type: 
  Country: None (occurrence: None)
  Receive Date: 20101228
  Receipt Date: 20101221
  Transmission Date: 20110411
  Serious: Yes (Other)
  Sender: FDA-Public Use
  Company Number: JP-PFIZER INC-2010176889

PATIENT
  Age: 20 Year
  Sex: Male

DRUGS (6)
  1. IRINOTECAN HCL [Suspect]
     Indication: UNDIFFERENTIATED SARCOMA
     Dosage: UNK
  2. ADRIACIN [Concomitant]
     Indication: UNDIFFERENTIATED SARCOMA
     Dosage: 75 MG/M2, UNK
     Route: 042
  3. IFOSFAMIDE [Concomitant]
     Indication: UNDIFFERENTIATED SARCOMA
     Dosage: 1.8 MG/M2, UNK
  4. ETOPOSIDE [Concomitant]
     Indication: UNDIFFERENTIATED SARCOMA
     Dosage: 100 MG/M2, DAY 1-5
  5. VINCRISTINE [Concomitant]
     Indication: UNDIFFERENTIATED SARCOMA
     Dosage: 1.5 MG/M2, UNK
  6. CYCLOPHOSPHAMIDE [Concomitant]
     Indication: UNDIFFERENTIATED SARCOMA
     Dosage: 1.2 MG/M2, DAY 1

REACTIONS (2)
  - BONE MARROW FAILURE [None]
  - CHOLANGITIS [None]
